FAERS Safety Report 22194425 (Version 1)
Quarter: 2023Q2

REPORT INFORMATION
  Report Type: Spontaneous
  Country: CN (occurrence: CN)
  Receive Date: 20230411
  Receipt Date: 20230411
  Transmission Date: 20230721
  Serious: Yes (Other)
  Sender: FDA-Public Use
  Company Number: CN-STRIDES ARCOLAB LIMITED-2023SP005018

PATIENT
  Age: 46 Year
  Sex: Male

DRUGS (6)
  1. ETOPOSIDE [Suspect]
     Active Substance: ETOPOSIDE
     Indication: Small cell lung cancer limited stage
     Dosage: 100 MILLIGRAM/SQ. METER, CYCLICAL, DAYS 1-3; EVERY 3 WEEKS
     Route: 065
  2. ETOPOSIDE [Suspect]
     Active Substance: ETOPOSIDE
     Dosage: UNK, CYCLICAL, 2 MORE CYCLES, THERAPY CONTINUED AND COMPLETED (TOTAL 4 CYCLES)
     Route: 065
  3. CARBOPLATIN [Suspect]
     Active Substance: CARBOPLATIN
     Indication: Small cell lung cancer limited stage
     Dosage: UNK, CYCLICAL, AUC 5, DAY 1; EVERY 3 WEEKS
     Route: 065
  4. CARBOPLATIN [Suspect]
     Active Substance: CARBOPLATIN
     Dosage: UNK, CYCLICAL, 2 MORE CYCLES, THERAPY CONTINUED AND COMPLETED (TOTAL 4 CYCLES)
     Route: 065
  5. TISLELIZUMAB [Suspect]
     Active Substance: TISLELIZUMAB
     Indication: Small cell lung cancer limited stage
     Dosage: 200 MILLIGRAM, CYCLICAL,DAY 1, EVERY 3 WEEKS
     Route: 065
  6. TISLELIZUMAB [Suspect]
     Active Substance: TISLELIZUMAB
     Dosage: UNK, CYCLICAL, 2 MORE CYCLES, THERAPY CONTINUED AND COMPLETED (TOTAL 4 CYCLES)
     Route: 065

REACTIONS (2)
  - Hypothyroidism [Unknown]
  - Off label use [Unknown]

NARRATIVE: CASE EVENT DATE: 20220401
